FAERS Safety Report 9779014 (Version 4)
Quarter: 2014Q1

REPORT INFORMATION
  Report Type: Spontaneous
  Country: JP (occurrence: JP)
  Receive Date: 20131223
  Receipt Date: 20140310
  Transmission Date: 20141002
  Serious: Yes (Life-Threatening, Disabling, Other)
  Sender: FDA-Public Use
  Company Number: JP-BRISTOL-MYERS SQUIBB COMPANY-19934488

PATIENT
  Age: 76 Year
  Sex: Male
  Weight: 56 kg

DRUGS (3)
  1. ERBITUX SOLN FOR INF 5MG/ML [Suspect]
     Indication: PHARYNGEAL CANCER
     Dosage: 450MG 1 IN 1 WEEK,JUL13-03SEP13, ONGOING
     Route: 041
     Dates: start: 20130702, end: 20130903
  2. SOLU-CORTEF [Concomitant]
     Indication: PROPHYLAXIS
     Route: 041
     Dates: start: 20130709, end: 20130716
  3. RESTAMIN [Concomitant]
     Indication: PROPHYLAXIS
     Route: 048
     Dates: start: 20130702, end: 20130903

REACTIONS (6)
  - Laryngeal stenosis [Not Recovered/Not Resolved]
  - Mucous membrane disorder [Not Recovered/Not Resolved]
  - Skin disorder [Recovered/Resolved]
  - Oedema mucosal [Not Recovered/Not Resolved]
  - Mucosal erosion [Not Recovered/Not Resolved]
  - Infusion related reaction [Recovered/Resolved]
